FAERS Safety Report 6417679-5 (Version None)
Quarter: 2009Q4

REPORT INFORMATION
  Report Type: 
  Country: None (occurrence: None)
  Receive Date: 20091028
  Receipt Date: 20091022
  Transmission Date: 20100525
  Serious: Yes (Hospitalization)
  Sender: FDA-Public Use
  Company Number: PHHO2009FR12123

PATIENT
  Sex: Female

DRUGS (3)
  1. RAD 666 RAD+TAB [Suspect]
     Indication: ENDOMETRIAL CANCER METASTATIC
     Dosage: 10 MG, QD
     Route: 048
     Dates: start: 20090922, end: 20090929
  2. RAD 666 RAD+TAB [Suspect]
     Dosage: 5 MG PER DAY
     Route: 048
     Dates: start: 20091012, end: 20091016
  3. ACETAMINOPHEN [Concomitant]

REACTIONS (5)
  - DEHYDRATION [None]
  - DIARRHOEA [None]
  - FOOD INTOLERANCE [None]
  - RENAL FAILURE [None]
  - VOMITING [None]
